FAERS Safety Report 8807817 (Version 2)
Quarter: 2013Q1

REPORT INFORMATION
  Report Type: Spontaneous
  Country: JP (occurrence: JP)
  Receive Date: 20120925
  Receipt Date: 20130104
  Transmission Date: 20140127
  Serious: Yes (Death, Hospitalization, Other)
  Sender: FDA-Public Use
  Company Number: JP-ROCHE-1135045

PATIENT
  Age: 78 Year
  Sex: Male
  Weight: 54 kg

DRUGS (3)
  1. XELODA [Suspect]
     Indication: GASTRIC CANCER RECURRENT
     Dosage: IT IS ADMINISTER/ONE WEEKLY HOLIDAY MEDICINE FOR TWO WEEKS.
     Route: 048
     Dates: start: 20120905, end: 20120910
  2. HERCEPTIN [Suspect]
     Indication: GASTRIC CANCER RECURRENT
     Route: 041
     Dates: start: 20120905
  3. PLATOSIN [Concomitant]
     Indication: GASTRIC CANCER RECURRENT
     Route: 041
     Dates: start: 20120905

REACTIONS (4)
  - Acute respiratory distress syndrome [Fatal]
  - Pancytopenia [Unknown]
  - Pneumonia bacterial [Unknown]
  - Interstitial lung disease [Not Recovered/Not Resolved]
